FAERS Safety Report 5367461-5 (Version None)
Quarter: 2007Q2

REPORT INFORMATION
  Report Type: 
  Country: None (occurrence: None)
  Receive Date: 20070622
  Receipt Date: 20060710
  Transmission Date: 20071010
  Serious: No
  Sender: FDA-Public Use
  Company Number: US-ASTRAZENECA-2006UW14198

PATIENT
  Age: 76 Year
  Sex: Male
  Weight: 67.1 kg

DRUGS (3)
  1. PULMICORT [Suspect]
     Indication: CHRONIC OBSTRUCTIVE PULMONARY DISEASE
     Dosage: PUFFS
     Route: 055
  2. STATIN [Concomitant]
     Indication: BLOOD CHOLESTEROL INCREASED
  3. ALBUTEROL [Concomitant]

REACTIONS (1)
  - MUSCLE SPASMS [None]
